FAERS Safety Report 15989857 (Version 3)
Quarter: 2021Q1

REPORT INFORMATION
  Report Type: Other
  Country: US (occurrence: US)
  Receive Date: 20190221
  Receipt Date: 20210315
  Transmission Date: 20210419
  Serious: Yes (Hospitalization)
  Sender: FDA-Public Use
  Company Number: US-ROCHE-2270552

PATIENT
  Age: 53 Year
  Sex: Female
  Weight: 57.2 kg

DRUGS (1)
  1. OCREVUS [Suspect]
     Active Substance: OCRELIZUMAB
     Indication: PROGRESSIVE MULTIPLE SCLEROSIS
     Dosage: SUBSEQUENT DOSES ON 11/MAY/2018, 02/JUN/2018, 30/MAY/2019, 20/DEC/2019, 24/JUL/2020 AND 03/MAR/2021
     Route: 042
     Dates: start: 201712

REACTIONS (1)
  - Urinary tract infection [Recovered/Resolved]

NARRATIVE: CASE EVENT DATE: 20190129
